FAERS Safety Report 18694363 (Version 1)
Quarter: 2020Q4

REPORT INFORMATION
  Report Type: Spontaneous
  Country: US (occurrence: US)
  Receive Date: 20201231
  Receipt Date: 20201231
  Transmission Date: 20210114
  Serious: Yes (Other)
  Sender: FDA-Public Use
  Company Number: None

PATIENT
  Age: 75 Year
  Sex: Female

DRUGS (3)
  1. MYCOPHENOLATE 5000 MG BID [Concomitant]
     Dates: start: 20110324, end: 20201231
  2. ATORVASTATIN 80 MG DAILY [Concomitant]
     Dates: start: 20110801, end: 20201231
  3. REPATHA [Suspect]
     Active Substance: EVOLOCUMAB
     Indication: AUTOIMMUNE HEPATITIS
     Dosage: ?          OTHER FREQUENCY:EVERY 14 DAYS;?
     Route: 058
     Dates: start: 20200101, end: 20201030

REACTIONS (2)
  - Autoimmune hepatitis [None]
  - Liver function test increased [None]

NARRATIVE: CASE EVENT DATE: 20201009
